FAERS Safety Report 9379873 (Version 1)
Quarter: 2013Q3

REPORT INFORMATION
  Report Type: Spontaneous
  Country: EG (occurrence: EG)
  Receive Date: 20130702
  Receipt Date: 20130702
  Transmission Date: 20140515
  Serious: Yes (Hospitalization)
  Sender: FDA-Public Use
  Company Number: EG-ELI_LILLY_AND_COMPANY-EC201306007908

PATIENT
  Sex: Male

DRUGS (1)
  1. FORTEO [Suspect]
     Indication: OSTEOPOROSIS
     Dosage: UNK
     Route: 058
     Dates: start: 20130617

REACTIONS (1)
  - Lower limb fracture [Not Recovered/Not Resolved]
